FAERS Safety Report 13055608 (Version 1)
Quarter: 2016Q4

REPORT INFORMATION
  Report Type: Spontaneous
  Country: US (occurrence: US)
  Receive Date: 20161222
  Receipt Date: 20161222
  Transmission Date: 20170207
  Serious: No
  Sender: FDA-Public Use
  Company Number: US-MYLANLABS-2016M1026676

PATIENT
  Sex: Male

DRUGS (1)
  1. DIPHENOXYLATE HYDROCHLORIDE AND ATROPINE SULFATE TABLETS, USP [Suspect]
     Active Substance: ATROPINE\DIPHENOXYLATE HYDROCHLORIDE
     Dosage: 5 MG/ 0.05 MG/ Q6H, PRN
     Route: 048
     Dates: start: 201409

REACTIONS (1)
  - Drug ineffective [Recovered/Resolved]
